FAERS Safety Report 25910729 (Version 1)
Quarter: 2025Q4

REPORT INFORMATION
  Report Type: Spontaneous
  Country: KR (occurrence: KR)
  Receive Date: 20251013
  Receipt Date: 20251013
  Transmission Date: 20260117
  Serious: Yes (Hospitalization, Other)
  Sender: JOHNSON AND JOHNSON
  Company Number: KR-BAYER-2025A133509

PATIENT
  Age: 80 Year
  Sex: Male

DRUGS (1)
  1. XARELTO [Suspect]
     Active Substance: RIVAROXABAN
     Indication: Pulmonary embolism
     Route: 048

REACTIONS (6)
  - Haemoptysis [Unknown]
  - Haematoma [Unknown]
  - Emphysema [Unknown]
  - Protein C decreased [Unknown]
  - Increased bronchial secretion [Unknown]
  - Dyspnoea [Unknown]
